FAERS Safety Report 8581331-0 (Version None)
Quarter: 2012Q3

REPORT INFORMATION
  Report Type: 
  Country: None (occurrence: None)
  Receive Date: 20120809
  Receipt Date: 20120807
  Transmission Date: 20120928
  Serious: Yes (Hospitalization)
  Sender: FDA-Public Use
  Company Number: PHHY2012AU068098

PATIENT
  Sex: Female

DRUGS (2)
  1. CLOZARIL [Suspect]
     Dosage: 350 MG, UNK
     Dates: start: 19980505
  2. CLOZAPINE [Suspect]

REACTIONS (1)
  - MENTAL IMPAIRMENT [None]
